FAERS Safety Report 9607528 (Version 1)
Quarter: 2013Q4

REPORT INFORMATION
  Report Type: Spontaneous
  Country: FR (occurrence: None)
  Receive Date: 20131004
  Receipt Date: 20131004
  Transmission Date: 20140711
  Serious: Yes (Hospitalization)
  Sender: FDA-Public Use
  Company Number: 1893516

PATIENT
  Age: 82 Year
  Sex: Female

DRUGS (1)
  1. CARBOPLATIN [Suspect]
     Indication: OVARIAN CANCER
     Dosage: (NOT OTHERWISE SPECIFIED)
     Route: 042
     Dates: start: 20120423, end: 20120423

REACTIONS (4)
  - Hypovolaemia [None]
  - Hypotension [None]
  - Vomiting [None]
  - Chest pain [None]
